FAERS Safety Report 8802082 (Version 1)
Quarter: 2012Q4

REPORT INFORMATION
  Report Type: Report from Study
  Country: JP (occurrence: JP)
  Receive Date: 20120921
  Receipt Date: 20120921
  Transmission Date: 20130627
  Serious: Yes (Other)
  Sender: FDA-Public Use
  Company Number: JP-009507513-1209JPN006361

PATIENT
  Age: 72 Year
  Sex: Male
  Weight: 70 kg

DRUGS (7)
  1. PEGINTRON [Suspect]
     Indication: HEPATITIS C
     Dosage: 7.5 Microgram per kilogram, UNK
     Route: 058
  2. PEGINTRON [Suspect]
     Dosage: 1.5 Microgram per kilogram, UNK
     Route: 058
     Dates: end: 20120802
  3. REBETOL [Suspect]
     Indication: HEPATITIS C
     Dosage: 400 mg, UNK
     Route: 048
     Dates: end: 20120718
  4. REBETOL [Suspect]
     Dosage: 200 mg, UNK
     Route: 048
     Dates: start: 20120719
  5. REBETOL [Suspect]
     Dosage: 400 mg, UNK
     Route: 048
     Dates: end: 20120802
  6. TELAVIC [Suspect]
     Indication: HEPATITIS C
     Dosage: 1500 mg, UNK
     Route: 048
     Dates: start: 20120507, end: 20120802
  7. ZYLORIC [Concomitant]
     Dosage: 300 mg, UNK
     Route: 048
     Dates: start: 20120609

REACTIONS (3)
  - Anaemia [Not Recovered/Not Resolved]
  - Malaise [Recovering/Resolving]
  - Decreased appetite [Recovering/Resolving]
